FAERS Safety Report 8643702 (Version 2)
Quarter: 2013Q1

REPORT INFORMATION
  Report Type: Spontaneous
  Country: JP (occurrence: JP)
  Receive Date: 20120629
  Receipt Date: 20130215
  Transmission Date: 20140127
  Serious: No
  Sender: FDA-Public Use
  Company Number: JP-JNJFOC-20120611685

PATIENT
  Sex: 0

DRUGS (1)
  1. ONEDURO [Suspect]
     Indication: CANCER PAIN
     Route: 062

REACTIONS (2)
  - Nausea [Unknown]
  - Wrong technique in drug usage process [Unknown]
